FAERS Safety Report 4614180-6 (Version None)
Quarter: 2005Q1

REPORT INFORMATION
  Report Type: 
  Country: None (occurrence: None)
  Receive Date: 20050315
  Receipt Date: 20050302
  Transmission Date: 20050727
  Serious: Yes (Death, Other)
  Sender: FDA-Public Use
  Company Number: 2005042137

PATIENT
  Sex: Female

DRUGS (6)
  1. ZOLOFT [Suspect]
     Indication: DEPRESSED MOOD
     Dosage: 100 MG (100 MG), ORAL
     Route: 048
     Dates: start: 20020101
  2. ARICEPT [Suspect]
     Indication: DEMENTIA ALZHEIMER'S TYPE
     Dosage: 10 MG, 1 IN 1 D, ORAL
     Route: 048
     Dates: start: 20010601, end: 20040401
  3. ALL OTHER THERAPEUTIC PRODUCTS (ALL OTHER THERAPEUTIC PRODUCTS) [Suspect]
     Indication: DEMENTIA ALZHEIMER'S TYPE
     Dosage: ORAL
     Route: 048
     Dates: start: 20040101, end: 20040101
  4. VERAPAMIL [Concomitant]
  5. ACETYLSALICYLIC ACID (ACETYLSALICYLIC ACID) [Concomitant]
  6. DOCUSATE (DOCUSATE) [Concomitant]

REACTIONS (8)
  - APHONIA [None]
  - ATRIOVENTRICULAR BLOCK [None]
  - CARDIAC ARREST [None]
  - CHOKING [None]
  - DEMENTIA ALZHEIMER'S TYPE [None]
  - DEPRESSED MOOD [None]
  - DISEASE PROGRESSION [None]
  - FEELING ABNORMAL [None]
